FAERS Safety Report 4421462-X (Version None)
Quarter: 2004Q3

REPORT INFORMATION
  Report Type: 
  Country: None (occurrence: None)
  Receive Date: 20040712
  Receipt Date: 20040326
  Transmission Date: 20050211
  Serious: No
  Sender: FDA-Public Use
  Company Number: 2004-03-2087

PATIENT
  Sex: Male

DRUGS (1)
  1. CLARINEX [Suspect]
     Dosage: ORAL
     Route: 048

REACTIONS (3)
  - DYSPNOEA [None]
  - HEADACHE [None]
  - PLEURITIC PAIN [None]
